FAERS Safety Report 5751659-8 (Version None)
Quarter: 2008Q2

REPORT INFORMATION
  Report Type: 
  Country: None (occurrence: None)
  Receive Date: 20080528
  Receipt Date: 20080521
  Transmission Date: 20081010
  Serious: Yes (Other)
  Sender: FDA-Public Use
  Company Number: PHBS2004BR04697

PATIENT
  Sex: Male
  Weight: 66 kg

DRUGS (16)
  1. TEGRETOL 200 LC [Suspect]
     Indication: ANXIETY
     Dosage: 200
     Dates: start: 20050613, end: 20050704
  2. TEGRETOL 200 LC [Suspect]
     Indication: HEADACHE
  3. ANAFRANIL [Suspect]
     Indication: GENERALISED ANXIETY DISORDER
     Dosage: 10
     Route: 048
  4. OLCADIL [Suspect]
     Indication: ANXIETY
     Dosage: 1 MG AM AND 2 MG AT NIGHT
     Route: 048
     Dates: start: 19980901
  5. PAMELOR [Suspect]
     Route: 065
  6. NORTRIPTYLINE HYDROCHLORIDE [Concomitant]
     Indication: SYNCOPE
     Dosage: 15 MG/D
     Route: 048
     Dates: start: 20040322, end: 20040322
  7. NORTRIPTYLINE HYDROCHLORIDE [Concomitant]
     Dosage: 15 MG, BID
     Route: 048
     Dates: start: 20040323
  8. FLUNARIZINE [Concomitant]
     Indication: SYNCOPE
     Dosage: 3 MG, BID
     Route: 048
     Dates: start: 20040323
  9. GINKGO BILOBA [Concomitant]
     Indication: LABYRINTHITIS
     Dosage: 80 MG, BID
     Route: 048
     Dates: start: 20010101
  10. POLIVITAMINICO [Concomitant]
     Route: 065
     Dates: start: 20070705
  11. MINERALS NOS [Concomitant]
     Route: 065
     Dates: start: 20070705
  12. PROZAC [Concomitant]
     Route: 065
  13. TRYPTANOL [Concomitant]
     Route: 065
  14. SUVECTOR [Concomitant]
     Route: 065
  15. FEBRELIN [Concomitant]
     Route: 065
  16. OMEPRAZOLE [Concomitant]
     Indication: REFLUX OESOPHAGITIS
     Dosage: 20
     Route: 048
     Dates: start: 19970101

REACTIONS (22)
  - ABDOMINAL PAIN [None]
  - AGITATION [None]
  - ANXIETY [None]
  - CONSTIPATION [None]
  - DRUG INEFFECTIVE [None]
  - EAR INFECTION [None]
  - HEADACHE [None]
  - HEART RATE INCREASED [None]
  - INFLUENZA [None]
  - INSOMNIA [None]
  - IRRITABILITY [None]
  - MALAISE [None]
  - MUSCLE INJURY [None]
  - NASOPHARYNGITIS [None]
  - NOCTIPHOBIA [None]
  - PANIC ATTACK [None]
  - PHARYNGITIS [None]
  - RASH [None]
  - SEXUAL DYSFUNCTION [None]
  - SYNCOPE [None]
  - TACHYCARDIA [None]
  - TREMOR [None]
